FAERS Safety Report 9411990 (Version 2)
Quarter: 2013Q3

REPORT INFORMATION
  Report Type: Spontaneous
  Country: FR (occurrence: FR)
  Receive Date: 20130722
  Receipt Date: 20130802
  Transmission Date: 20140515
  Serious: Yes (Hospitalization)
  Sender: FDA-Public Use
  Company Number: FR-JNJFOC-20130709754

PATIENT
  Age: 35 Year
  Sex: Female

DRUGS (4)
  1. XARELTO [Suspect]
     Indication: THROMBOSIS PROPHYLAXIS
     Route: 048
     Dates: start: 20130615, end: 20130618
  2. XARELTO [Suspect]
     Indication: THROMBOSIS
     Route: 048
     Dates: start: 20130615, end: 20130618
  3. COPPER IUD [Concomitant]
     Indication: CONTRACEPTION
     Route: 065
  4. HEPARIN [Concomitant]
     Route: 065

REACTIONS (3)
  - Abortion spontaneous [Recovered/Resolved]
  - Exposure during pregnancy [Unknown]
  - Off label use [Unknown]
